FAERS Safety Report 4421330-3 (Version None)
Quarter: 2004Q3

REPORT INFORMATION
  Report Type: 
  Country: None (occurrence: None)
  Receive Date: 20040804
  Receipt Date: 20040722
  Transmission Date: 20050211
  Serious: Yes (Other)
  Sender: FDA-Public Use
  Company Number: 2004034519

PATIENT
  Age: 69 Year
  Sex: Female

DRUGS (1)
  1. LIPITOR [Suspect]
     Indication: HYPERCHOLESTEROLAEMIA
     Dosage: 10 MG (10 MG,  1 IN 1 D), ORAL
     Route: 048
     Dates: start: 20000901

REACTIONS (6)
  - GLOSSITIS [None]
  - GLOSSODYNIA [None]
  - HEPATITIS [None]
  - PARAESTHESIA ORAL [None]
  - TONGUE COATED [None]
  - TONGUE ULCERATION [None]
